FAERS Safety Report 14763051 (Version 4)
Quarter: 2018Q2

REPORT INFORMATION
  Report Type: Spontaneous
  Country: GB (occurrence: GB)
  Receive Date: 20180416
  Receipt Date: 20180608
  Transmission Date: 20180711
  Serious: Yes (Other)
  Sender: FDA-Public Use
  Company Number: GB-PFIZER INC-2018152487

PATIENT
  Age: 17 Year
  Sex: Female

DRUGS (10)
  1. BLEOMYCIN [Suspect]
     Active Substance: BLEOMYCIN SULFATE
     Dosage: 6 MG/M2, CYCLIC, (DAY22  THREE COURSES, MAX 10 MG)
  2. ETOPOSIDE. [Suspect]
     Active Substance: ETOPOSIDE
     Dosage: 200 MG/M2, CYCLIC, (DAY 2,3, THREE COURSES)
     Route: 048
  3. DOXORUBICIN HCL [Suspect]
     Active Substance: DOXORUBICIN HYDROCHLORIDE
     Indication: HODGKIN^S DISEASE
     Dosage: 25 MG/M2, CYCLIC,(DAY 8,THREE COURSES)
  4. VINCRISTINE SULFATE. [Suspect]
     Active Substance: VINCRISTINE SULFATE
     Indication: HODGKIN^S DISEASE
     Dosage: 2 MG, CYCLIC, (DAY 1, THREE COURSES)
  5. VINBLASTINE [Suspect]
     Active Substance: VINBLASTINE
     Indication: HODGKIN^S DISEASE
     Dosage: 6 MG/M2, CYCLIC (DAY 8, MAX 10 MG, THREE COURSES)
  6. PROCARBAZINE [Suspect]
     Active Substance: PROCARBAZINE
     Indication: HODGKIN^S DISEASE
     Dosage: 100 MG/M2, CYCLIC,(DAY1-14, THREE COURSES)
  7. PREDNISOLONE. [Suspect]
     Active Substance: PREDNISOLONE
     Indication: HODGKIN^S DISEASE
     Dosage: 40 MG, DAILY (DAY 14-28, THREE COURSES)
  8. ETOPOSIDE. [Suspect]
     Active Substance: ETOPOSIDE
     Indication: HODGKIN^S DISEASE
     Dosage: 100 MG/M2, 1X/DAY (DAY 1,  THREE COURSES)
     Route: 042
  9. BLEOMYCIN [Suspect]
     Active Substance: BLEOMYCIN SULFATE
     Indication: HODGKIN^S DISEASE
     Dosage: 6 MG/M2, CYCLIC, (DAY 15,  THREE COURSES, MAX 10 MG)
  10. CHLORAMBUCIL [Suspect]
     Active Substance: CHLORAMBUCIL
     Indication: HODGKIN^S DISEASE
     Dosage: 6 MG/M2, CYCLIC, (DAY1-14, MAX 10 MG, THREE COURSES)

REACTIONS (2)
  - Second primary malignancy [Unknown]
  - Chronic myeloid leukaemia [Unknown]
